FAERS Safety Report 4913875-4 (Version None)
Quarter: 2006Q1

REPORT INFORMATION
  Report Type: 
  Country: None (occurrence: None)
  Receive Date: 20060216
  Receipt Date: 20051111
  Transmission Date: 20060701
  Serious: Yes (Hospitalization, Disabling)
  Sender: FDA-Public Use
  Company Number: US-MERCK-0511USA02061

PATIENT
  Age: 50 Year
  Sex: Male
  Weight: 103 kg

DRUGS (6)
  1. VIOXX [Suspect]
     Route: 048
  2. GLUCOTROL [Concomitant]
     Route: 065
  3. AVANDIA [Concomitant]
     Route: 065
  4. ECOTRIN [Concomitant]
     Route: 065
  5. ATACAND [Concomitant]
     Route: 065
  6. ZOCOR [Concomitant]
     Route: 065

REACTIONS (13)
  - ARTHROPATHY [None]
  - BACK INJURY [None]
  - CEREBROVASCULAR ACCIDENT [None]
  - CERVICOBRACHIAL SYNDROME [None]
  - COLONIC POLYP [None]
  - FLANK PAIN [None]
  - HAEMATURIA [None]
  - HAEMORRHAGIC INFARCTION [None]
  - IMPINGEMENT SYNDROME [None]
  - INTERVERTEBRAL DISC DEGENERATION [None]
  - INTERVERTEBRAL DISC PROTRUSION [None]
  - NECK INJURY [None]
  - OSTEOARTHRITIS [None]
